FAERS Safety Report 9718009 (Version 1)
Quarter: 2013Q4

REPORT INFORMATION
  Report Type: Spontaneous
  Country: US (occurrence: US)
  Receive Date: 20131125
  Receipt Date: 20131125
  Transmission Date: 20140711
  Serious: No
  Sender: FDA-Public Use
  Company Number: US-VIVUS-2013V1000424

PATIENT
  Age: 53 Year
  Sex: Female
  Weight: 92.62 kg

DRUGS (9)
  1. QSYMIA 7.5MG/46MG [Suspect]
     Indication: WEIGHT DECREASED
     Route: 048
     Dates: start: 20130602
  2. QSYMIA 3.75MG/23MG [Suspect]
     Indication: WEIGHT DECREASED
     Route: 048
     Dates: start: 201304, end: 2013
  3. SYNTHROID [Concomitant]
     Indication: HYPOTHYROIDISM
     Route: 048
     Dates: start: 2008
  4. BUPROPION [Concomitant]
     Indication: STRESS
     Route: 048
     Dates: start: 2012
  5. HYDROCODONE [Concomitant]
     Indication: ARTHRALGIA
     Dosage: 5MG-500MG
     Route: 048
     Dates: start: 2012
  6. CYCLOBENZAPRINE [Concomitant]
     Indication: MUSCLE RELAXANT THERAPY
     Route: 048
  7. ONE -A-DAY VITAMINS [Concomitant]
     Indication: VITAMIN SUPPLEMENTATION
     Route: 048
     Dates: start: 1993
  8. CALTRATE+D [Concomitant]
     Indication: MEDICAL DIET
     Route: 048
     Dates: start: 1993
  9. PROBIOTIC [Concomitant]
     Indication: PROPHYLAXIS
     Route: 048
     Dates: start: 2007

REACTIONS (4)
  - Abdominal discomfort [Recovered/Resolved]
  - Dyspnoea [Not Recovered/Not Resolved]
  - Palpitations [Not Recovered/Not Resolved]
  - Inappropriate schedule of drug administration [Recovered/Resolved]
